FAERS Safety Report 10579724 (Version 1)
Quarter: 2014Q4

REPORT INFORMATION
  Report Type: Spontaneous
  Country: US (occurrence: US)
  Receive Date: 20141112
  Receipt Date: 20141112
  Transmission Date: 20150529
  Serious: No
  Sender: FDA-Public Use
  Company Number: US-TEVA-521892USA

PATIENT
  Sex: Female

DRUGS (1)
  1. CLARAVIS [Suspect]
     Active Substance: ISOTRETINOIN
     Route: 048
     Dates: start: 20140813, end: 20141012

REACTIONS (6)
  - Alopecia [Unknown]
  - Vision blurred [Unknown]
  - Swelling face [Unknown]
  - Madarosis [Unknown]
  - Headache [Unknown]
  - Burning sensation [Unknown]
